FAERS Safety Report 6752232-5 (Version None)
Quarter: 2010Q2

REPORT INFORMATION
  Report Type: 
  Country: None (occurrence: None)
  Receive Date: 20100602
  Receipt Date: 20100528
  Transmission Date: 20101027
  Serious: Yes (Disabling, Other)
  Sender: FDA-Public Use
  Company Number: BR-BAYER-200915991LA

PATIENT
  Age: 47 Year
  Sex: Female

DRUGS (16)
  1. BETAFERON [Suspect]
     Indication: RELAPSING-REMITTING MULTIPLE SCLEROSIS
     Dosage: TOTAL DAILY DOSE: 8 MIU
     Route: 058
     Dates: start: 20040101
  2. BETAFERON [Suspect]
     Dosage: TOTAL DAILY DOSE: 8 MIU
     Route: 058
     Dates: start: 20050425
  3. AMITRIPTYLINE HCL [Concomitant]
     Indication: MUSCLE SPASTICITY
     Dosage: 2 TABLETS / DAY
     Route: 048
     Dates: start: 19830101
  4. DIAZEPAM [Concomitant]
     Indication: MUSCLE SPASTICITY
     Dosage: AND MORE TABLETS PRN
     Route: 048
     Dates: start: 19830101
  5. SIRDALUD [Concomitant]
     Indication: MUSCLE SPASTICITY
     Dosage: 2 TABLETS / DAY
     Route: 048
     Dates: start: 19830101
  6. NUCLEO C.M.P. [Concomitant]
     Indication: PAIN
     Dosage: 3 TABLETS / DAY
     Route: 048
     Dates: start: 20090901
  7. TORAGESIC [Concomitant]
     Indication: PAIN
     Route: 048
     Dates: start: 20090901
  8. ENALAPRIL [Concomitant]
     Indication: HYPERTENSION
     Dosage: 1 TABLET / DAY
     Route: 048
     Dates: start: 19900101
  9. AVANDIA [Concomitant]
     Indication: DIABETES MELLITUS
     Dosage: 1 TABLET / DAY
     Route: 048
     Dates: start: 20040101
  10. METFORMIN HCL [Concomitant]
     Indication: DIABETES MELLITUS
     Dosage: 3 TABLETS / DAY
     Route: 048
     Dates: start: 19900101
  11. GLYBURIDE [Concomitant]
     Indication: DIABETES MELLITUS
     Dosage: 1 TABLET AFTER DINNER
     Route: 048
     Dates: start: 20040101
  12. BENERVA [Concomitant]
     Indication: DIABETIC NEUROPATHY
     Dosage: 2 TABLETS / DAY
     Route: 048
     Dates: start: 19830101
  13. DORMONIDE [Concomitant]
     Indication: SPINAL COLUMN STENOSIS
     Dosage: 1 TABLET / NIGHT
     Route: 048
     Dates: start: 19830101
  14. OCADIL [Concomitant]
     Indication: SPINAL COLUMN STENOSIS
     Dosage: 1 TABLET / DAY
     Route: 048
     Dates: start: 19830101
  15. TEGRETOL [Concomitant]
     Indication: SPINAL COLUMN STENOSIS
     Dosage: 2 TABLETS / DAY
     Route: 048
     Dates: start: 19830101
  16. LIORESAL [Concomitant]
     Indication: SPINAL COLUMN STENOSIS
     Dosage: 2 TABLETS AT NIGHT
     Route: 048
     Dates: start: 19830101

REACTIONS (14)
  - BACK PAIN [None]
  - BURNING SENSATION [None]
  - DEPRESSION [None]
  - INFLUENZA LIKE ILLNESS [None]
  - INJECTION SITE PAIN [None]
  - MALAISE [None]
  - MOTOR DYSFUNCTION [None]
  - MULTIPLE SCLEROSIS [None]
  - MUSCLE SPASMS [None]
  - PAIN [None]
  - PAIN IN EXTREMITY [None]
  - PYREXIA [None]
  - SENSORY LOSS [None]
  - SYNCOPE [None]
